FAERS Safety Report 15577485 (Version 1)
Quarter: 2018Q4

REPORT INFORMATION
  Report Type: Other
  Country: ES (occurrence: ES)
  Receive Date: 20181102
  Receipt Date: 20181102
  Transmission Date: 20190205
  Serious: Yes (Life-Threatening, Hospitalization, Other)
  Sender: FDA-Public Use
  Company Number: ES-APOTEX-2018AP023561

PATIENT
  Age: 14 Year
  Sex: Female
  Weight: 46 kg

DRUGS (3)
  1. DAPAROX                            /00830802/ [Concomitant]
     Active Substance: PAROXETINE HYDROCHLORIDE
     Indication: PERSISTENT DEPRESSIVE DISORDER
     Dosage: 20 GTT, QD
     Route: 048
     Dates: start: 20170813, end: 20170813
  2. LORAZEPAM. [Concomitant]
     Active Substance: LORAZEPAM
     Indication: PERSISTENT DEPRESSIVE DISORDER
     Dosage: UNK UNK, QD
     Route: 048
     Dates: start: 20170813, end: 20170813
  3. PARACETAMOL [Suspect]
     Active Substance: ACETAMINOPHEN
     Indication: SUICIDE ATTEMPT
     Dosage: 25 G, UNK
     Route: 048
     Dates: start: 20170820, end: 20170820

REACTIONS (2)
  - Hepatitis fulminant [Recovered/Resolved]
  - Intentional overdose [Recovered/Resolved]

NARRATIVE: CASE EVENT DATE: 20170820
